FAERS Safety Report 23560207 (Version 3)
Quarter: 2024Q1

REPORT INFORMATION
  Report Type: Other
  Country: US (occurrence: None)
  Receive Date: 20240223
  Receipt Date: 20240328
  Transmission Date: 20240410
  Serious: No
  Sender: FDA-Public Use
  Company Number: US-ROCHE-3511266

PATIENT
  Age: 58 Year
  Sex: Female
  Weight: 50.394 kg

DRUGS (4)
  1. OCREVUS [Suspect]
     Active Substance: OCRELIZUMAB
     Indication: Relapsing-remitting multiple sclerosis
     Dosage: DATE OF TREATMENT: 16/MAY/2018, 28/NOV/2018, 12/MAR/2021, 23/MAY/2023.
     Route: 042
     Dates: start: 201606
  2. DIPHENHYDRAMINE [Concomitant]
     Active Substance: DIPHENHYDRAMINE
  3. PROTONIX [Concomitant]
     Active Substance: PANTOPRAZOLE SODIUM
  4. SOLU-MEDROL [Concomitant]
     Active Substance: METHYLPREDNISOLONE SODIUM SUCCINATE

REACTIONS (6)
  - Vaginal discharge [Not Recovered/Not Resolved]
  - Rash [Not Recovered/Not Resolved]
  - Hypoacusis [Not Recovered/Not Resolved]
  - COVID-19 [Not Recovered/Not Resolved]
  - Alopecia [Recovered/Resolved]
  - Herpes zoster [Not Recovered/Not Resolved]

NARRATIVE: CASE EVENT DATE: 20211122
